FAERS Safety Report 23094432 (Version 1)
Quarter: 2023Q4

REPORT INFORMATION
  Report Type: Spontaneous
  Country: EU (occurrence: EU)
  Receive Date: 20231023
  Receipt Date: 20231023
  Transmission Date: 20240110
  Serious: Yes (Other)
  Sender: FDA-Public Use
  Company Number: EU-Adamed-2023-AER-00269

PATIENT

DRUGS (3)
  1. METHOTREXATE [Suspect]
     Active Substance: METHOTREXATE
     Indication: Microscopic polyangiitis
     Dosage: 5 MG EVERY 7 DAYS
     Route: 048
  2. SULFAMETHOXAZOLE\TRIMETHOPRIM [Suspect]
     Active Substance: SULFAMETHOXAZOLE\TRIMETHOPRIM
     Indication: Pneumocystis jirovecii pneumonia
     Dosage: 480 MG 3 TIMES PER WEEK
  3. RITUXIMAB [Concomitant]
     Active Substance: RITUXIMAB
     Dosage: MAINTENANCE EVERY 6 MONTHS WAS RECOMMENDED.

REACTIONS (3)
  - Salmonella sepsis [Unknown]
  - Pancytopenia [Unknown]
  - Product use in unapproved indication [Unknown]
